FAERS Safety Report 21727688 (Version 1)
Quarter: 2022Q4

REPORT INFORMATION
  Report Type: Spontaneous
  Country: US (occurrence: None)
  Receive Date: 20221213
  Receipt Date: 20221213
  Transmission Date: 20230113
  Serious: No
  Sender: FDA-Public Use
  Company Number: None

PATIENT
  Age: 71 Year
  Sex: Female
  Weight: 84.55 kg

DRUGS (23)
  1. VERZENIO [Suspect]
     Active Substance: ABEMACICLIB
     Indication: Breast cancer
     Dosage: FREQUENCY : TWICE A DAY;?
     Route: 048
     Dates: start: 20220521
  2. Accu-Chek [Concomitant]
  3. ALLEVYN [Concomitant]
  4. ANASTROZOLE [Concomitant]
     Active Substance: ANASTROZOLE
  5. ATIVAN [Concomitant]
     Active Substance: LORAZEPAM
  6. BREO ELLIPTA [Concomitant]
     Active Substance: FLUTICASONE FUROATE\VILANTEROL TRIFENATATE
  7. BUSPIRONE [Concomitant]
     Active Substance: BUSPIRONE HYDROCHLORIDE
  8. Caratate [Concomitant]
  9. COLACE [Concomitant]
     Active Substance: DOCUSATE SODIUM
  10. Contour [Concomitant]
  11. DEXAMETHASONE [Concomitant]
     Active Substance: DEXAMETHASONE
  12. HUMALOG [Concomitant]
     Active Substance: INSULIN LISPRO
  13. MIRALAX [Concomitant]
     Active Substance: POLYETHYLENE GLYCOL 3350
  14. ACETAMINOPHEN\OXYCODONE HYDROCHLORIDE [Concomitant]
     Active Substance: ACETAMINOPHEN\OXYCODONE HYDROCHLORIDE
  15. PANTOPRAZOLE [Concomitant]
     Active Substance: PANTOPRAZOLE
  16. PRAVASTATIN [Concomitant]
     Active Substance: PRAVASTATIN
  17. PreserVision/Lutein [Concomitant]
  18. SUPER CALCIUM 600 [Concomitant]
  19. TRAMADOL [Concomitant]
     Active Substance: TRAMADOL
  20. ULTRACARE [Concomitant]
  21. VITAMIN D3 [Concomitant]
     Active Substance: CHOLECALCIFEROL
  22. XANAX [Concomitant]
     Active Substance: ALPRAZOLAM
  23. XARELTO [Concomitant]
     Active Substance: RIVAROXABAN

REACTIONS (1)
  - Hospitalisation [None]
